FAERS Safety Report 19668438 (Version 2)
Quarter: 2021Q3

REPORT INFORMATION
  Report Type: Spontaneous
  Country: US (occurrence: US)
  Receive Date: 20210806
  Receipt Date: 20210826
  Transmission Date: 20211014
  Serious: Yes (Hospitalization, Other)
  Sender: FDA-Public Use
  Company Number: US-ORGANON-O2108USA000375

PATIENT
  Age: 60 Year
  Sex: Female
  Weight: 67.2 kg

DRUGS (5)
  1. FOSAMAX [Suspect]
     Active Substance: ALENDRONATE SODIUM
     Indication: OSTEOPOROSIS
     Dosage: 70 MILLIGRAM, QW
     Route: 048
     Dates: start: 20200901, end: 20210512
  2. COMIRNATY [Suspect]
     Active Substance: TOZINAMERAN
     Dosage: DOSE 4 SINGLE (DOSE 2 IN OPEN?LABEL), IN LEFT DELTOID
     Route: 030
     Dates: start: 20210126, end: 20210126
  3. AMITRIPTYLINE [Concomitant]
     Active Substance: AMITRIPTYLINE
     Indication: MIGRAINE
     Dosage: UNK
     Dates: start: 20201212
  4. FOSAMAX [Suspect]
     Active Substance: ALENDRONATE SODIUM
     Dosage: 70 MILLIGRAM, QW
     Route: 048
     Dates: start: 20210513, end: 20210621
  5. COMIRNATY [Suspect]
     Active Substance: TOZINAMERAN
     Indication: COVID-19
     Dosage: DOSE 3, (DOSE 1 IN OPEN LABEL), IN LEFT DELTOID
     Route: 030
     Dates: start: 20210105, end: 20210105

REACTIONS (2)
  - Arteriospasm coronary [Unknown]
  - Gastrointestinal disorder [Unknown]

NARRATIVE: CASE EVENT DATE: 20210512
